FAERS Safety Report 12649112 (Version 1)
Quarter: 2016Q3

REPORT INFORMATION
  Report Type: Spontaneous
  Country: FR (occurrence: FR)
  Receive Date: 20160812
  Receipt Date: 20160812
  Transmission Date: 20161109
  Serious: Yes (Other)
  Sender: FDA-Public Use
  Company Number: FR-ELI_LILLY_AND_COMPANY-FR201608002838

PATIENT
  Age: 75 Year
  Sex: Female

DRUGS (2)
  1. UMULINE [Suspect]
     Active Substance: INSULIN HUMAN
     Indication: DIABETES MELLITUS
     Dosage: UNK, UNKNOWN
     Route: 065
     Dates: start: 1993
  2. UMULINE [Suspect]
     Active Substance: INSULIN HUMAN
     Dosage: 8 U, EACH MORNING
     Route: 065

REACTIONS (3)
  - Intentional underdose [Unknown]
  - Diabetes mellitus inadequate control [Unknown]
  - Diabetic coma [Unknown]

NARRATIVE: CASE EVENT DATE: 2014
